FAERS Safety Report 5160563-8 (Version None)
Quarter: 2006Q4

REPORT INFORMATION
  Report Type: 
  Country: None (occurrence: None)
  Receive Date: 20061121
  Receipt Date: 20061106
  Transmission Date: 20070319
  Serious: Yes (Other)
  Sender: FDA-Public Use
  Company Number: 2006099286

PATIENT
  Age: 70 Year
  Sex: Male
  Weight: 79.3795 kg

DRUGS (2)
  1. DILANTIN KAPSEAL [Suspect]
     Indication: CONVULSION
     Dosage: 400 MG (400 MG, 1 IN 1 D)
     Dates: start: 20060101
  2. ALL OTHER THERAPEUTIC PRODUCTS (ALL OTHER THERAPEUTIC PRODUCTS) [Concomitant]

REACTIONS (4)
  - ANTICONVULSANT DRUG LEVEL ABOVE THERAPEUTIC [None]
  - ANTICONVULSANT DRUG LEVEL BELOW THERAPEUTIC [None]
  - CONVULSION [None]
  - FEELING ABNORMAL [None]
